FAERS Safety Report 7057970-5 (Version None)
Quarter: 2010Q4

REPORT INFORMATION
  Report Type: 
  Country: None (occurrence: None)
  Receive Date: 20101022
  Receipt Date: 20101012
  Transmission Date: 20110411
  Serious: Yes (Other)
  Sender: FDA-Public Use
  Company Number: US-PFIZER INC-2010130173

PATIENT
  Sex: Female
  Weight: 98.413 kg

DRUGS (8)
  1. LYRICA [Suspect]
     Indication: FIBROMYALGIA
     Dosage: 50 MG, 2X/DAY
     Route: 048
     Dates: start: 20070101
  2. ACETYLSALICYLIC ACID [Concomitant]
     Dosage: 325MG
  3. LASIX [Concomitant]
     Dosage: 40 MG, 2X/DAY
  4. POTASSIUM [Concomitant]
     Dosage: 10 MG, DAILY
  5. COUMADIN [Concomitant]
     Dosage: 2.5 MG, DAILY
  6. METOPROLOL [Concomitant]
     Dosage: 25 MG, 2X/DAY
  7. PACERONE [Concomitant]
     Dosage: 100 MG, 2X/DAY
  8. PLAVIX [Concomitant]
     Dosage: 75 MG, DAILY

REACTIONS (2)
  - ALPHA-1 ANTI-TRYPSIN DEFICIENCY [None]
  - DIABETES MELLITUS [None]
